APPROVED DRUG PRODUCT: LOCHOLEST
Active Ingredient: CHOLESTYRAMINE
Strength: EQ 4GM RESIN/SCOOPFUL
Dosage Form/Route: POWDER;ORAL
Application: A074561 | Product #002 | TE Code: AB
Applicant: CHARTWELL RX SCIENCES LLC
Approved: Aug 15, 1996 | RLD: No | RS: No | Type: RX